FAERS Safety Report 9613373 (Version 1)
Quarter: 2013Q4

REPORT INFORMATION
  Report Type: Spontaneous
  Country: JP (occurrence: JP)
  Receive Date: 20131010
  Receipt Date: 20131010
  Transmission Date: 20140711
  Serious: Yes (Other)
  Sender: FDA-Public Use
  Company Number: PHHY2013JP111802

PATIENT
  Age: 37 Year
  Sex: Male

DRUGS (2)
  1. PREDNISOLONE [Suspect]
     Indication: COLITIS ULCERATIVE
     Dosage: 8000 MG TOTAL DOSE
  2. PREDNISOLONE [Suspect]
     Dosage: 600 MG/MONTH BEFORE SURGERY

REACTIONS (1)
  - Pouchitis [Unknown]
